FAERS Safety Report 12644317 (Version 1)
Quarter: 2016Q3

REPORT INFORMATION
  Report Type: Spontaneous
  Country: US (occurrence: US)
  Receive Date: 20160811
  Receipt Date: 20160811
  Transmission Date: 20161109
  Serious: No
  Sender: FDA-Public Use
  Company Number: US-LUNDBECK-DKLU2016259

PATIENT
  Age: 79 Year
  Sex: Male

DRUGS (1)
  1. NORTHERA [Suspect]
     Active Substance: DROXIDOPA
     Indication: SYNCOPE
     Dosage: TITRATION: DAYS 1-2 1 CAP TID, DAYS 3-4 2 CAPS TID, DAYS 5-6 3 CAPS TID, DAYS 7-8 4 CAPS TID, DAYS 9
     Route: 048
     Dates: start: 20160616

REACTIONS (1)
  - Blood pressure increased [Unknown]
